FAERS Safety Report 10904484 (Version 1)
Quarter: 2015Q1

REPORT INFORMATION
  Report Type: Spontaneous
  Country: US (occurrence: None)
  Receive Date: 20150304
  Receipt Date: 20150304
  Transmission Date: 20150721
  Serious: Yes (Life-Threatening)
  Sender: FDA-Public Use
  Company Number: None

PATIENT
  Age: 24 Year
  Sex: Female
  Weight: 68.04 kg

DRUGS (3)
  1. AZITHROMYCIN MONOHYDRATE. [Suspect]
     Active Substance: AZITHROMYCIN MONOHYDRATE
     Indication: BRONCHITIS
     Dosage: 6 ONCE DAILY TAKEN BY MOUTH
     Route: 048
     Dates: start: 20150227, end: 20150301
  2. METFORMIN [Concomitant]
     Active Substance: METFORMIN HYDROCHLORIDE
  3. MULTIVITAMIN [Concomitant]
     Active Substance: VITAMINS

REACTIONS (6)
  - Heart rate irregular [None]
  - Chest pain [None]
  - Migraine [None]
  - Dizziness [None]
  - Nausea [None]
  - Panic attack [None]

NARRATIVE: CASE EVENT DATE: 20150227
